FAERS Safety Report 16348098 (Version 1)
Quarter: 2019Q2

REPORT INFORMATION
  Report Type: Spontaneous
  Country: US (occurrence: US)
  Receive Date: 20190523
  Receipt Date: 20190523
  Transmission Date: 20190711
  Serious: No
  Sender: FDA-Public Use
  Company Number: US-IGSA-SR10007900

PATIENT
  Sex: Male

DRUGS (15)
  1. DONEPEZIL. [Concomitant]
     Active Substance: DONEPEZIL
     Dosage: 10 MG, QD
  2. LYSINE                             /00919902/ [Concomitant]
     Dosage: 500 MG, UNK
  3. LATANOPROST + TIMOLOL ACTAVIS [Concomitant]
     Dosage: UNK
  4. LOSARTIN [Concomitant]
     Active Substance: LOSARTAN
     Dosage: 100 MG, QD
  5. VALTREX S [Concomitant]
     Dosage: 500 MG, UNK
  6. VITAMIN B12 [Concomitant]
     Active Substance: CYANOCOBALAMIN
     Dosage: 1000 ?G, UNK
  7. ACETAMINOPHEN. [Concomitant]
     Active Substance: ACETAMINOPHEN
     Indication: PREMEDICATION
     Dosage: 645 MG, UNK
  8. PRESERVISION 3 [Concomitant]
     Active Substance: MINERALS\OMEGA-3 FATTY ACIDS\VITAMINS
     Dosage: UNK UNK, QD
  9. PROPRANOLOL [Concomitant]
     Active Substance: PROPRANOLOL HYDROCHLORIDE
     Dosage: 20 MG, UNK
  10. RANITIDINE                         /00550802/ [Concomitant]
     Active Substance: RANITIDINE
     Dosage: 150 MG, QD
  11. ADDERALL [Concomitant]
     Active Substance: AMPHETAMINE ASPARTATE\AMPHETAMINE SULFATE\DEXTROAMPHETAMINE SACCHARATE\DEXTROAMPHETAMINE SULFATE
     Dosage: 5 MG, UNK
  12. RASAGILINE                         /01759903/ [Concomitant]
     Dosage: 1 MG, QD
  13. ROPINIROLE                         /01242902/ [Concomitant]
     Dosage: 12 MG, QD
  14. GAMUNEX-C [Suspect]
     Active Substance: HUMAN IMMUNOGLOBULIN G
     Indication: CHRONIC INFLAMMATORY DEMYELINATING POLYRADICULONEUROPATHY
     Dosage: 60 G, UNK
     Route: 042
     Dates: start: 20181226, end: 20181226
  15. VITAMIN D                          /00107901/ [Concomitant]
     Active Substance: ERGOCALCIFEROL
     Dosage: 1000 IU, QD

REACTIONS (3)
  - Rash [Recovering/Resolving]
  - Dyspnoea [Unknown]
  - Pruritus [Not Recovered/Not Resolved]

NARRATIVE: CASE EVENT DATE: 20181226
